FAERS Safety Report 17524616 (Version 2)
Quarter: 2020Q1

REPORT INFORMATION
  Report Type: Spontaneous
  Country: CA (occurrence: CA)
  Receive Date: 20200310
  Receipt Date: 20200316
  Transmission Date: 20200409
  Serious: Yes (Other)
  Sender: FDA-Public Use
  Company Number: CA-PFIZER INC-2019465369

PATIENT
  Age: 67 Year
  Sex: Female

DRUGS (7)
  1. XELJANZ [Suspect]
     Active Substance: TOFACITINIB CITRATE
     Dosage: 5 MG, 2X/DAY
     Route: 048
     Dates: start: 20200311, end: 20200311
  2. SHINGRIX [Concomitant]
     Active Substance: RECOMBINANT VARICELLA ZOSTER VIRUS (VZV) GLYCOPROTEIN E
     Dosage: UNK
     Dates: start: 20200107
  3. CORTISONE [Concomitant]
     Active Substance: CORTISONE
     Dosage: UNK
  4. CELEBREX [Concomitant]
     Active Substance: CELECOXIB
     Dosage: UNK
  5. XELJANZ [Suspect]
     Active Substance: TOFACITINIB CITRATE
     Dosage: 5 MG, 2X/DAY
     Route: 048
     Dates: start: 20191205, end: 20200310
  6. XELJANZ [Suspect]
     Active Substance: TOFACITINIB CITRATE
     Indication: RHEUMATOID ARTHRITIS
     Dosage: 5 MG, 2X/DAY
     Route: 048
     Dates: start: 20191126, end: 2019
  7. SHINGRIX [Concomitant]
     Active Substance: RECOMBINANT VARICELLA ZOSTER VIRUS (VZV) GLYCOPROTEIN E
     Dosage: UNK

REACTIONS (18)
  - Asthma [Unknown]
  - Paraesthesia oral [Unknown]
  - Drug hypersensitivity [Unknown]
  - Oxygen saturation decreased [Unknown]
  - Therapeutic product effect delayed [Unknown]
  - Fatigue [Unknown]
  - Dyspnoea [Unknown]
  - Hypoglycaemia [Unknown]
  - Weight increased [Unknown]
  - Ocular hyperaemia [Unknown]
  - Pain [Unknown]
  - Back pain [Unknown]
  - Dysstasia [Unknown]
  - Eye swelling [Unknown]
  - Swelling face [Unknown]
  - Burning sensation [Unknown]
  - Headache [Unknown]
  - Erythema [Unknown]

NARRATIVE: CASE EVENT DATE: 2020
